FAERS Safety Report 9720087 (Version 1)
Quarter: 2013Q4

REPORT INFORMATION
  Report Type: Spontaneous
  Country: US (occurrence: US)
  Receive Date: 20131128
  Receipt Date: 20131128
  Transmission Date: 20140711
  Serious: No
  Sender: FDA-Public Use
  Company Number: US-009507513-1311USA006404

PATIENT
  Sex: Female

DRUGS (6)
  1. LIPTRUZET [Suspect]
     Indication: BLOOD CHOLESTEROL INCREASED
     Dosage: 10/80MG,1 STANDARD PACKAGE BLSRPACK OF 7
     Route: 048
     Dates: start: 20130925, end: 20131028
  2. VIVELLE-DOT [Concomitant]
  3. CALTRATE (CALCIUM CARBONATE) [Concomitant]
  4. ASPIRIN [Concomitant]
     Dosage: LOW DOSE
     Route: 048
  5. IMITREX (SUMATRIPTAN) [Concomitant]
  6. HYDROCHLOROTHIAZIDE [Concomitant]
     Route: 048

REACTIONS (6)
  - Musculoskeletal pain [Not Recovered/Not Resolved]
  - Pain in extremity [Not Recovered/Not Resolved]
  - Nasopharyngitis [Not Recovered/Not Resolved]
  - Headache [Not Recovered/Not Resolved]
  - Poor quality sleep [Not Recovered/Not Resolved]
  - Myalgia [Not Recovered/Not Resolved]
